FAERS Safety Report 8363408-8 (Version None)
Quarter: 2012Q2

REPORT INFORMATION
  Report Type: 
  Country: None (occurrence: None)
  Receive Date: 20120516
  Receipt Date: 20120306
  Transmission Date: 20120825
  Serious: Yes (Other)
  Sender: FDA-Public Use
  Company Number: US-ALEXION-A201101887

PATIENT
  Sex: Male
  Weight: 116 kg

DRUGS (12)
  1. SOLIRIS [Suspect]
     Dosage: 1200 MG, Q2W
     Route: 042
     Dates: start: 20111121
  2. FOLIC ACID [Concomitant]
     Dosage: UNK
  3. NAPROXEN (ALEVE) [Concomitant]
     Dosage: UNK
  4. SOLIRIS [Suspect]
     Indication: PAROXYSMAL NOCTURNAL HAEMOGLOBINURIA
     Dosage: 900 MG, UNK
     Route: 042
     Dates: end: 20111107
  5. IRON [Concomitant]
     Dosage: UNK
  6. FISH OIL [Concomitant]
     Dosage: UNK
  7. FLORASTOR [Concomitant]
     Dosage: UNK
     Dates: start: 20111201
  8. VITAMIN B-12 [Concomitant]
     Dosage: UNK
  9. COENZYME Q10 [Concomitant]
     Dosage: UNK
  10. MULTI-VITAMIN [Concomitant]
     Dosage: UNK
  11. TRAMADOL HYDROCHLORIDE [Concomitant]
     Dosage: UNK, PRN
  12. ASCORBIC ACID [Concomitant]
     Dosage: UNK

REACTIONS (4)
  - LYMPHADENITIS [None]
  - INFECTION [None]
  - MALAISE [None]
  - CHROMATURIA [None]
